FAERS Safety Report 19223643 (Version 1)
Quarter: 2021Q2

REPORT INFORMATION
  Report Type: Spontaneous
  Country: US (occurrence: US)
  Receive Date: 20210505
  Receipt Date: 20210505
  Transmission Date: 20210717
  Serious: No
  Sender: FDA-Public Use
  Company Number: US-ROCHE-2754374

PATIENT
  Sex: Female

DRUGS (4)
  1. MUCINEX [Concomitant]
     Active Substance: GUAIFENESIN
  2. CLARITIN?D 12 HOUR [Concomitant]
     Active Substance: LORATADINE\PSEUDOEPHEDRINE SULFATE
  3. ESBRIET [Suspect]
     Active Substance: PIRFENIDONE
     Indication: CHEST PAIN
     Dosage: TAKE 3 TABLETS BY MOUTH THREE TIMES DAILY
     Route: 048
  4. SILDENAFIL CITRATE. [Concomitant]
     Active Substance: SILDENAFIL CITRATE

REACTIONS (4)
  - Intentional product use issue [Unknown]
  - Off label use [Unknown]
  - Product dose omission issue [Unknown]
  - No adverse event [Unknown]
